FAERS Safety Report 16141151 (Version 1)
Quarter: 2019Q2

REPORT INFORMATION
  Report Type: Report from Study
  Country: FR (occurrence: FR)
  Receive Date: 20190401
  Receipt Date: 20190401
  Transmission Date: 20190711
  Serious: Yes (Death)
  Sender: FDA-Public Use
  Company Number: PHHO2019FR003508

PATIENT
  Age: 59 Year
  Sex: Female
  Weight: 53 kg

DRUGS (6)
  1. METHOTREXATE. [Suspect]
     Active Substance: METHOTREXATE
     Indication: PRODUCT USED FOR UNKNOWN INDICATION
     Dosage: 15 MG, QD
     Route: 058
     Dates: start: 20180801, end: 20180801
  2. AMN107 [Suspect]
     Active Substance: NILOTINIB
     Indication: ACUTE LYMPHOCYTIC LEUKAEMIA
     Dosage: 400 MG, QD
     Route: 048
     Dates: start: 20180725
  3. PREDNISOLONE. [Suspect]
     Active Substance: PREDNISOLONE
     Indication: PRODUCT USED FOR UNKNOWN INDICATION
     Dosage: 40 MG, UNK
     Route: 042
     Dates: start: 20180801, end: 20180801
  4. DEXAMETHASONE. [Suspect]
     Active Substance: DEXAMETHASONE
     Indication: PRODUCT USED FOR UNKNOWN INDICATION
     Dosage: 40 MG, QD
     Route: 058
     Dates: start: 20180725
  5. VINCRISTINE [Suspect]
     Active Substance: VINCRISTINE
     Indication: PRODUCT USED FOR UNKNOWN INDICATION
     Dosage: 2 MG, QD
     Route: 065
     Dates: start: 20180725, end: 20180725
  6. CYTARABINE. [Suspect]
     Active Substance: CYTARABINE
     Indication: PRODUCT USED FOR UNKNOWN INDICATION
     Dosage: 40 MG, QD
     Route: 058
     Dates: start: 20180801, end: 20180801

REACTIONS (1)
  - Septic shock [Fatal]

NARRATIVE: CASE EVENT DATE: 20180813
